FAERS Safety Report 5794612-0 (Version None)
Quarter: 2008Q2

REPORT INFORMATION
  Report Type: 
  Country: None (occurrence: None)
  Receive Date: 20080627
  Receipt Date: 20080627
  Transmission Date: 20081010
  Serious: Yes (Hospitalization)
  Sender: FDA-Public Use
  Company Number: None

PATIENT
  Sex: Male
  Weight: 84.8226 kg

DRUGS (4)
  1. LISINOPRIL [Suspect]
     Indication: HYPERTENSION
     Dosage: PO DAILY  PRIOR TO ADMISSION
     Route: 048
  2. ZOCOR [Concomitant]
  3. FOLIC ACID [Concomitant]
  4. IMODIUM [Concomitant]

REACTIONS (5)
  - ASTHENIA [None]
  - DIPLOPIA [None]
  - DIZZINESS [None]
  - PRESYNCOPE [None]
  - SYNCOPE [None]
